FAERS Safety Report 18996062 (Version 1)
Quarter: 2021Q1

REPORT INFORMATION
  Report Type: Spontaneous
  Country: IT (occurrence: IT)
  Receive Date: 20210311
  Receipt Date: 20210311
  Transmission Date: 20210420
  Serious: Yes (Other)
  Sender: FDA-Public Use
  Company Number: IT-SUN PHARMACEUTICAL INDUSTRIES LTD-2021R1-284502

PATIENT
  Age: 29 Year
  Sex: Female

DRUGS (3)
  1. CYCLOPHOSPHAMIDE. [Suspect]
     Active Substance: CYCLOPHOSPHAMIDE
     Indication: IMMUNE THROMBOCYTOPENIA
     Dosage: 1267.5 MILLIGRAM,EVERY 3 WEEKS
     Route: 065
  2. PREDNISONE. [Suspect]
     Active Substance: PREDNISONE
     Indication: IMMUNE THROMBOCYTOPENIA
     Dosage: 68 MILLIGRAM,EVERY 3 WEEKS
     Route: 065
  3. VINCRISTINE [Suspect]
     Active Substance: VINCRISTINE
     Indication: IMMUNE THROMBOCYTOPENIA
     Dosage: 2.366 MILLIGRAM,EVERY 3 WEEKS
     Route: 065

REACTIONS (6)
  - Cytomegalovirus infection [Unknown]
  - Escherichia infection [Unknown]
  - Haemolytic anaemia [Unknown]
  - Epistaxis [Unknown]
  - Gingival bleeding [Unknown]
  - Petechiae [Unknown]
